FAERS Safety Report 11033467 (Version 2)
Quarter: 2015Q2

REPORT INFORMATION
  Report Type: Spontaneous
  Country: IT (occurrence: IT)
  Receive Date: 20150415
  Receipt Date: 20150429
  Transmission Date: 20150821
  Serious: Yes (Hospitalization)
  Sender: FDA-Public Use
  Company Number: IT-ROCHE-1562373

PATIENT
  Age: 45 Year
  Sex: Female

DRUGS (2)
  1. OFTAQUIX [Concomitant]
     Active Substance: LEVOFLOXACIN
  2. AVASTIN [Suspect]
     Active Substance: BEVACIZUMAB
     Indication: CHOROID NEOPLASM
     Dosage: CONCENTRATE FOR SOLUTION FOR INFUSION?100 MG VIAL
     Route: 031
     Dates: start: 20150402, end: 20150402

REACTIONS (3)
  - Urticaria [Not Recovered/Not Resolved]
  - Rash [Not Recovered/Not Resolved]
  - Product use issue [Unknown]

NARRATIVE: CASE EVENT DATE: 20150402
